FAERS Safety Report 13948645 (Version 1)
Quarter: 2017Q3

REPORT INFORMATION
  Report Type: Spontaneous
  Country: US (occurrence: None)
  Receive Date: 20170907
  Receipt Date: 20170907
  Transmission Date: 20171128
  Serious: Yes (Hospitalization)
  Sender: FDA-Public Use
  Company Number: None

PATIENT
  Age: 65 Year
  Sex: Female

DRUGS (16)
  1. IBRANCE [Suspect]
     Active Substance: PALBOCICLIB
     Indication: BREAST CANCER FEMALE
     Route: 048
     Dates: start: 20170516
  2. VENLAFAXINE [Concomitant]
     Active Substance: VENLAFAXINE HYDROCHLORIDE
  3. ZYRTEC [Concomitant]
     Active Substance: CETIRIZINE HYDROCHLORIDE
  4. ZOMIG [Concomitant]
     Active Substance: ZOLMITRIPTAN
  5. VITAMIN D3 [Concomitant]
     Active Substance: CHOLECALCIFEROL
  6. ASCORBIC ACID. [Concomitant]
     Active Substance: ASCORBIC ACID
  7. FISH OIL [Concomitant]
     Active Substance: FISH OIL
  8. WARFARIN [Concomitant]
     Active Substance: WARFARIN
  9. HYDROCHLOROT [Concomitant]
     Active Substance: HYDROCHLOROTHIAZIDE
  10. FAMOTIDINE. [Concomitant]
     Active Substance: FAMOTIDINE
  11. VITAMIN B12 [Concomitant]
     Active Substance: CYANOCOBALAMIN
  12. LOSARTAN. [Concomitant]
     Active Substance: LOSARTAN
  13. CALCIUM [Concomitant]
     Active Substance: CALCIUM
  14. CELEBREX [Concomitant]
     Active Substance: CELECOXIB
  15. TRAMADOL. [Concomitant]
     Active Substance: TRAMADOL
  16. MULTIVITAMIN [Concomitant]
     Active Substance: VITAMINS

REACTIONS (1)
  - Dyspnoea [None]

NARRATIVE: CASE EVENT DATE: 20170906
